FAERS Safety Report 6848459-4 (Version None)
Quarter: 2010Q3

REPORT INFORMATION
  Report Type: 
  Country: None (occurrence: None)
  Receive Date: 20100716
  Receipt Date: 20100706
  Transmission Date: 20110219
  Serious: Yes (Hospitalization)
  Sender: FDA-Public Use
  Company Number: US-JNJFOC-20100607915

PATIENT
  Sex: Female
  Weight: 72.12 kg

DRUGS (8)
  1. REMICADE [Suspect]
     Indication: SARCOIDOSIS
     Route: 042
  2. CYMBALTA [Concomitant]
     Route: 065
  3. RESTASIS [Concomitant]
     Indication: DRY EYE
     Route: 065
  4. PROPRANOLOL [Concomitant]
     Route: 065
  5. ACYCLOVIR [Concomitant]
     Route: 065
  6. DIFLUCAN [Concomitant]
  7. OMEPRAZOLE [Concomitant]
     Route: 065
  8. MARIJUANA [Concomitant]

REACTIONS (9)
  - ASTHENIA [None]
  - DEHYDRATION [None]
  - DIARRHOEA [None]
  - DRUG LEVEL INCREASED [None]
  - GASTRITIS [None]
  - HEADACHE [None]
  - INFLUENZA LIKE ILLNESS [None]
  - VOMITING [None]
  - WEIGHT DECREASED [None]
